FAERS Safety Report 24941134 (Version 1)
Quarter: 2025Q1

REPORT INFORMATION
  Report Type: Spontaneous
  Country: CA (occurrence: CA)
  Receive Date: 20250207
  Receipt Date: 20250207
  Transmission Date: 20250408
  Serious: Yes (Death, Other)
  Sender: Steriscience PTE
  Company Number: CA-STERISCIENCE B.V.-2025-ST-000207

PATIENT

DRUGS (4)
  1. GANCICLOVIR SODIUM [Suspect]
     Active Substance: GANCICLOVIR SODIUM
     Indication: Cytomegalovirus infection
     Route: 042
  2. GANCICLOVIR SODIUM [Suspect]
     Active Substance: GANCICLOVIR SODIUM
     Indication: Pneumonitis
  3. GANCICLOVIR SODIUM [Suspect]
     Active Substance: GANCICLOVIR SODIUM
     Indication: Cytomegalovirus colitis
  4. ALEMTUZUMAB [Concomitant]
     Active Substance: ALEMTUZUMAB
     Indication: Lymphoproliferative disorder
     Route: 065

REACTIONS (1)
  - Drug ineffective for unapproved indication [Fatal]
